FAERS Safety Report 9322323 (Version 1)
Quarter: 2013Q2

REPORT INFORMATION
  Report Type: Spontaneous
  Country: GB (occurrence: None)
  Receive Date: 20130529
  Receipt Date: 20130529
  Transmission Date: 20140414
  Serious: Yes (Other)
  Sender: FDA-Public Use
  Company Number: 2013-001647

PATIENT
  Age: 0 Day
  Sex: 0

DRUGS (1)
  1. ASACOL [Suspect]
     Route: 064
     Dates: start: 2011

REACTIONS (1)
  - Cerebral infarction foetal [None]
